FAERS Safety Report 6417960-X (Version None)
Quarter: 2009Q4

REPORT INFORMATION
  Report Type: 
  Country: None (occurrence: None)
  Receive Date: 20091026
  Receipt Date: 20091013
  Transmission Date: 20100525
  Serious: Yes (Hospitalization, Other)
  Sender: FDA-Public Use
  Company Number: ADR38722009

PATIENT
  Age: 78 Year
  Sex: Male

DRUGS (9)
  1. SIMVASTATIN [Suspect]
     Dosage: 20 MG, ORAL
     Route: 048
     Dates: start: 20080415, end: 20080611
  2. KETOCONAZOLE [Concomitant]
  3. ASPIRIN [Concomitant]
  4. BICALUTAMIDE [Concomitant]
  5. BISIPROLOL [Concomitant]
  6. ERYTHROMYCIN [Concomitant]
  7. ISOSORBIDE [Concomitant]
  8. DINITRATE [Concomitant]
  9. RANITIDINE [Concomitant]

REACTIONS (5)
  - BLOOD CREATINE PHOSPHOKINASE INCREASED [None]
  - FALL [None]
  - MUSCULAR WEAKNESS [None]
  - MYALGIA [None]
  - MYOSITIS [None]
